FAERS Safety Report 20948922 (Version 1)
Quarter: 2022Q2

REPORT INFORMATION
  Report Type: Spontaneous
  Country: None (occurrence: CN)
  Receive Date: 20220612
  Receipt Date: 20220612
  Transmission Date: 20220720
  Serious: Yes (Other)
  Sender: FDA-Public Use
  Company Number: CN-Jiangsu Hengrui Medicine Co., Ltd.-2129746

PATIENT
  Age: 38 Year
  Sex: Female
  Weight: 62 kg

DRUGS (5)
  1. CISATRACURIUM BESYLATE [Suspect]
     Active Substance: CISATRACURIUM BESYLATE
     Indication: General anaesthesia
     Route: 017
     Dates: start: 20220517, end: 20220517
  2. SEVOFLURANE [Suspect]
     Active Substance: SEVOFLURANE
     Route: 055
     Dates: start: 20220517, end: 20220517
  3. ETOMIDATE [Suspect]
     Active Substance: ETOMIDATE
     Route: 017
     Dates: start: 20220517, end: 20220517
  4. SUFENTANIL CITRATE [Suspect]
     Active Substance: SUFENTANIL CITRATE
     Route: 041
     Dates: start: 20220517, end: 20220517
  5. DEXMEDETOMIDINE HYDROCHLORIDE [Suspect]
     Active Substance: DEXMEDETOMIDINE HYDROCHLORIDE
     Route: 041
     Dates: start: 20220517, end: 20220517

REACTIONS (2)
  - Vomiting [Recovered/Resolved]
  - Nausea [Recovered/Resolved]

NARRATIVE: CASE EVENT DATE: 20220518
